FAERS Safety Report 22300961 (Version 1)
Quarter: 2023Q2

REPORT INFORMATION
  Report Type: Report from Study
  Country: US (occurrence: None)
  Receive Date: 20230509
  Receipt Date: 20230509
  Transmission Date: 20230721
  Serious: Yes (Other)
  Sender: FDA-Public Use
  Company Number: 2023A105247

PATIENT
  Sex: Female

DRUGS (1)
  1. FASENRA [Suspect]
     Active Substance: BENRALIZUMAB
     Indication: Asthma
     Route: 058
     Dates: start: 202212

REACTIONS (8)
  - Malaise [Unknown]
  - Fluid retention [Unknown]
  - Cough [Unknown]
  - Bronchitis [Unknown]
  - Viral infection [Unknown]
  - Sinus headache [Unknown]
  - Asthma [Unknown]
  - Drug ineffective [Unknown]
